FAERS Safety Report 7905312-2 (Version None)
Quarter: 2011Q4

REPORT INFORMATION
  Report Type: 
  Country: None (occurrence: None)
  Receive Date: 20111109
  Receipt Date: 20111014
  Transmission Date: 20120403
  Serious: Yes (Other)
  Sender: FDA-Public Use
  Company Number: PHHY2011IE43639

PATIENT
  Sex: Female

DRUGS (13)
  1. FOSAMAX [Concomitant]
     Dosage: 70 MG, QD
  2. LANSOPRAZOLE [Concomitant]
     Dosage: 30 MG, QD
  3. RAMIPRIL [Concomitant]
     Dosage: 10 MG, QD
  4. CALCICHEW-D3 FORTE [Concomitant]
     Dosage: 2 DF
  5. TOVIAZ [Concomitant]
  6. PREDNISOLONE [Concomitant]
     Dosage: 35 MG, QD
     Dates: start: 20110406
  7. NEORAL [Suspect]
     Dosage: 125 MG, BID
     Route: 048
  8. ATORVASTATIN [Concomitant]
     Dosage: 20 MG
     Dates: end: 20110406
  9. AMLODIPINE [Concomitant]
     Dosage: 5 MG, QD
  10. NEORAL [Suspect]
     Indication: NEPHROTIC SYNDROME
     Dosage: 125 MG, BID
     Dates: start: 20110201
  11. BUMETANIDE [Concomitant]
     Dosage: 1 MG, QD
     Dates: start: 20110406
  12. LERCANIDIPINE [Concomitant]
     Dosage: 10 MG, QD
  13. ASPIRIN [Concomitant]
     Dosage: 75 MG, QD

REACTIONS (19)
  - HEADACHE [None]
  - JOINT SWELLING [None]
  - OROPHARYNGEAL PLAQUE [None]
  - PURPURA [None]
  - WHITE BLOOD CELL COUNT INCREASED [None]
  - HYPERTENSION [None]
  - NEUROTOXICITY [None]
  - MOUTH ULCERATION [None]
  - TREMOR [None]
  - LETHARGY [None]
  - DISEASE PROGRESSION [None]
  - PROTEINURIA [None]
  - FATIGUE [None]
  - BLOOD POTASSIUM INCREASED [None]
  - NEPHRITIS [None]
  - NEPHROTIC SYNDROME [None]
  - ERYTHEMA [None]
  - ASTHENIA [None]
  - MUSCLE SPASMS [None]
